FAERS Safety Report 21637033 (Version 1)
Quarter: 2022Q4

REPORT INFORMATION
  Report Type: Spontaneous
  Country: US (occurrence: US)
  Receive Date: 20221124
  Receipt Date: 20221124
  Transmission Date: 20230112
  Serious: No
  Sender: FDA-Public Use
  Company Number: US-BRISTOL-MYERS SQUIBB COMPANY-2022-142497

PATIENT
  Age: 74 Year
  Sex: Female
  Weight: 59.3 kg

DRUGS (1)
  1. REVLIMID [Suspect]
     Active Substance: LENALIDOMIDE
     Indication: Non-Hodgkin^s lymphoma
     Dosage: FREQUENCY:  DAILY FOR 21 DAYS OF 28-DAY
     Route: 048
     Dates: start: 202206

REACTIONS (1)
  - Respiratory rate increased [Unknown]
